FAERS Safety Report 21329812 (Version 1)
Quarter: 2022Q3

REPORT INFORMATION
  Report Type: Spontaneous
  Country: US (occurrence: US)
  Receive Date: 20220913
  Receipt Date: 20220913
  Transmission Date: 20221027
  Serious: Yes (Other)
  Sender: FDA-Public Use
  Company Number: US-drreddys-SPO/USA/22/0154434

PATIENT
  Age: 37 Year
  Sex: Female

DRUGS (1)
  1. ACCUTANE [Suspect]
     Active Substance: ISOTRETINOIN
     Indication: Product used for unknown indication
     Dosage: RMA ISSUE DATE: 26 MAY 2022 03:45:26 PM, 29 JUNE 2022 09:49:12 AM AND 08 AUGUST 2022 12:16:51 PM

REACTIONS (1)
  - Depression [Unknown]
